FAERS Safety Report 26113568 (Version 1)
Quarter: 2025Q4

REPORT INFORMATION
  Report Type: Spontaneous
  Country: US (occurrence: US)
  Receive Date: 20251202
  Receipt Date: 20251202
  Transmission Date: 20260117
  Serious: Yes (Other)
  Sender: ELI LILLY AND COMPANY
  Company Number: US-ELI_LILLY_AND_COMPANY-US202511025718

PATIENT
  Age: 58 Year

DRUGS (1)
  1. MOUNJARO [Suspect]
     Active Substance: TIRZEPATIDE
     Indication: Diabetes mellitus
     Dosage: UNK UNK, UNKNOWN
     Route: 065

REACTIONS (5)
  - Testicular failure [Unknown]
  - Testicular atrophy [Unknown]
  - Testicular microlithiasis [Unknown]
  - Genital cyst [Unknown]
  - Paternal exposure during pregnancy [Recovered/Resolved]
